FAERS Safety Report 7307599-6 (Version None)
Quarter: 2011Q1

REPORT INFORMATION
  Report Type: 
  Country: None (occurrence: None)
  Receive Date: 20110223
  Receipt Date: 20110214
  Transmission Date: 20110831
  Serious: Yes (Other)
  Sender: FDA-Public Use
  Company Number: AT-ROXANE LABORATORIES, INC.-2011-RO-00178RO

PATIENT
  Age: 79 Year
  Sex: Male

DRUGS (4)
  1. LEVODOPA [Suspect]
     Indication: ESSENTIAL TREMOR
  2. DIAZEPAM [Suspect]
     Indication: ESSENTIAL TREMOR
  3. PROPRANOLOL [Suspect]
     Indication: ESSENTIAL TREMOR
     Dosage: 120 MG
  4. BUPRANOLOL [Suspect]
     Indication: ESSENTIAL TREMOR

REACTIONS (4)
  - CONDITION AGGRAVATED [None]
  - HEART RATE DECREASED [None]
  - DRUG INEFFECTIVE [None]
  - VERTIGO [None]
